FAERS Safety Report 10016565 (Version 1)
Quarter: 2014Q1

REPORT INFORMATION
  Report Type: Spontaneous
  Country: US (occurrence: US)
  Receive Date: 20140317
  Receipt Date: 20140317
  Transmission Date: 20141002
  Serious: Yes (Hospitalization)
  Sender: FDA-Public Use
  Company Number: US-B.I. PHARMACEUTICALS,INC./RIDGEFIELD-2014-BI-10723BP

PATIENT
  Sex: Female

DRUGS (28)
  1. COMBIVENT [Suspect]
     Indication: CHRONIC OBSTRUCTIVE PULMONARY DISEASE
     Dosage: 4 PUF
     Route: 055
  2. ASPIRIN [Concomitant]
     Dosage: 81 MG
     Route: 048
  3. CALCIUM 500 WITH D 500 M [Concomitant]
     Dosage: 1.25 MG
     Route: 065
  4. CIPROFLOXACIN [Concomitant]
     Dosage: 1000 MG
     Route: 048
     Dates: start: 20131204
  5. CITALOPRAM20 [Concomitant]
     Dosage: ONE AND HALF TABLET DAILY
     Route: 048
  6. CLOBETASOL 0.05 [Concomitant]
     Dosage: 0.1 ANZ
     Route: 061
  7. DEXAMETHASONE [Concomitant]
     Dosage: DOSE PER APPLICATION: 10 MG/SO ML IN 0.9 %
     Route: 065
  8. SOD.CHLORIDE INTRAVENOUS PIGGYBACK [Concomitant]
     Route: 042
  9. DICYCLOMINE 10 MG [Concomitant]
     Indication: GASTROINTESTINAL PAIN
     Dosage: 10 MG
     Route: 048
  10. DOXAZOSIN 4 MG [Concomitant]
     Dosage: 4 MG
     Route: 048
  11. DUO NEB 0.5 MG-3 MG(2.5 MG BASE)/3ML NEB SOLUTION [Concomitant]
     Dosage: 12 ML
  12. FLAGYL 500MG [Concomitant]
     Dosage: 1500 MG
     Route: 048
  13. HYDROCHLOROTHIAZIDE 25 [Concomitant]
     Dosage: 25 MG
     Route: 048
  14. KEPPRA 500 [Concomitant]
     Dosage: 1000 MG
     Route: 048
  15. KLOR-CON M1O 10 MEQ [Concomitant]
     Dosage: 1 ANZ
     Route: 048
  16. LORAZEPAM 1 [Concomitant]
     Indication: ANXIETY
     Dosage: ONE HALF-ONE TABLET (0.5MG-1MG)
     Route: 048
  17. LORAZEPAM 1 [Concomitant]
     Indication: NAUSEA
  18. LORAZEPAM 1 [Concomitant]
     Indication: INSOMNIA
  19. NEUTASTA 6 MG/0.6 ML [Concomitant]
     Route: 058
  20. OMEPRAZOLE [Concomitant]
     Dosage: TAKE 1-2 TABLET(20-40MG)
     Route: 048
  21. OXYCODONE 15MG [Concomitant]
     Indication: PAIN
     Dosage: 60 MG
     Route: 048
  22. OXYGEN [Concomitant]
     Dosage: DOSE PER APPLICATION: 2 LITRES PER NC
     Route: 065
  23. PREVACID 15 MG [Concomitant]
     Dosage: 15 MG
     Route: 048
  24. PROCHLORPERAZINE MALEATE 10 MG [Concomitant]
     Dosage: 40 MG
     Route: 048
  25. RECLAST 5 MG/100ML [Concomitant]
     Dosage: DOSE PER APPLICATION: 5MG/100ML
     Route: 042
  26. TRAZODONE 50 MG [Concomitant]
     Indication: SLEEP DISORDER
     Dosage: 50 MG
     Route: 048
  27. VERAPAMIL ER360 MG [Concomitant]
     Dosage: 360 MG
     Route: 048
  28. ZOFRAN ODT 4 MG DISINTEGRATING TABLET [Concomitant]
     Indication: NAUSEA
     Route: 048

REACTIONS (5)
  - Sepsis [Unknown]
  - Clostridium difficile infection [Unknown]
  - Candida infection [Unknown]
  - Bacterial sepsis [Unknown]
  - Neutropenia [Unknown]
